FAERS Safety Report 8271045-9 (Version None)
Quarter: 2012Q1

REPORT INFORMATION
  Report Type: 
  Country: None (occurrence: None)
  Receive Date: 20120327
  Receipt Date: 20091109
  Transmission Date: 20120608
  Serious: Yes (Life-Threatening, Other)
  Sender: FDA-Public Use
  Company Number: PHEH2009US09420

PATIENT
  Age: 79 Year
  Sex: Female
  Weight: 65.2 kg

DRUGS (8)
  1. FELODIPINE [Suspect]
     Dosage: 2.5 MG, QD, ORAL
     Route: 048
     Dates: end: 20090701
  2. BENAZEPRIL HYDROCHLORIDE [Suspect]
     Dates: end: 20090701
  3. NILOTINIB (NILOTINIB) [Concomitant]
  4. ASPIRIN [Concomitant]
  5. METOPROLOL TARTRATE [Concomitant]
  6. GLEEVEC [Suspect]
     Indication: CHRONIC MYELOID LEUKAEMIA
     Dosage: 200 MG, BID, ORAL
     Route: 048
     Dates: start: 20090611, end: 20090723
  7. HYDROCHLOROTHIAZIDE [Concomitant]
  8. ATORVASTATIN [Concomitant]

REACTIONS (10)
  - EYE SWELLING [None]
  - DYSPHAGIA [None]
  - ANGIOEDEMA [None]
  - SWOLLEN TONGUE [None]
  - RASH [None]
  - HYPOTENSION [None]
  - COMPLEMENT FACTOR ABNORMAL [None]
  - WHEEZING [None]
  - DYSPNOEA [None]
  - APHASIA [None]
